FAERS Safety Report 13935003 (Version 2)
Quarter: 2018Q3

REPORT INFORMATION
  Report Type: Report from Study
  Country: None (occurrence: BR)
  Receive Date: 20170905
  Receipt Date: 20180720
  Transmission Date: 20181010
  Serious: Yes (Hospitalization, Other)
  Sender: FDA-Public Use
  Company Number: BR-ABBVIE-15K-020-1490954-00

PATIENT
  Sex: Female
  Weight: 66 kg

DRUGS (6)
  1. NIMESULIDE [Concomitant]
     Active Substance: NIMESULIDE
     Indication: INFLAMMATION
     Route: 048
  2. FOLIC ACID. [Concomitant]
     Active Substance: FOLIC ACID
     Indication: BONE DISORDER
  3. HUMIRA [Suspect]
     Active Substance: ADALIMUMAB
     Indication: RHEUMATOID ARTHRITIS
     Route: 058
     Dates: start: 20130101
  4. PREDNISONE. [Suspect]
     Active Substance: PREDNISONE
     Indication: INFLAMMATION
  5. HUMIRA [Suspect]
     Active Substance: ADALIMUMAB
     Route: 058
  6. PREDNISONE. [Suspect]
     Active Substance: PREDNISONE
     Indication: PAIN
     Route: 048

REACTIONS (11)
  - Spinal fracture [Not Recovered/Not Resolved]
  - Therapeutic response unexpected [Unknown]
  - Pain [Recovered/Resolved]
  - Therapeutic response shortened [Recovered/Resolved]
  - Osteoarthritis [Recovered/Resolved]
  - Osteoporosis [Unknown]
  - Lower limb fracture [Recovered/Resolved]
  - Post procedural infection [Unknown]
  - Pre-existing condition improved [Unknown]
  - Hypertension [Not Recovered/Not Resolved]
  - Gait disturbance [Unknown]

NARRATIVE: CASE EVENT DATE: 2013
